FAERS Safety Report 9310349 (Version 1)
Quarter: 2013Q2

REPORT INFORMATION
  Report Type: Spontaneous
  Country: US (occurrence: US)
  Receive Date: 20130527
  Receipt Date: 20130527
  Transmission Date: 20140414
  Serious: Yes (Other)
  Sender: FDA-Public Use
  Company Number: US-PFIZER INC-2013156067

PATIENT
  Sex: Female

DRUGS (2)
  1. GLUCOTROL [Suspect]
     Dosage: UNK
  2. ZOLOFT [Suspect]
     Dosage: UNK

REACTIONS (5)
  - Blindness [Unknown]
  - Localised infection [Unknown]
  - Animal scratch [Unknown]
  - Confusional state [Unknown]
  - Injury [Unknown]
